FAERS Safety Report 13844439 (Version 1)
Quarter: 2017Q3

REPORT INFORMATION
  Report Type: Spontaneous
  Country: BR (occurrence: BR)
  Receive Date: 20170808
  Receipt Date: 20170808
  Transmission Date: 20171127
  Serious: Yes (Hospitalization, Other)
  Sender: FDA-Public Use
  Company Number: BR-JNJFOC-20170802054

PATIENT
  Age: 27 Year

DRUGS (2)
  1. REMSIMA [Suspect]
     Active Substance: INFLIXIMAB
     Indication: PSORIASIS
     Route: 065
     Dates: start: 20170119, end: 20170119
  2. REMICADE [Suspect]
     Active Substance: INFLIXIMAB
     Indication: PSORIASIS
     Route: 042
     Dates: start: 20151211, end: 2016

REACTIONS (10)
  - Dermatitis exfoliative [Unknown]
  - Infusion related reaction [Unknown]
  - Generalised erythema [Unknown]
  - Urinary tract infection [Unknown]
  - Pustular psoriasis [Unknown]
  - Cough [Unknown]
  - Nausea [Unknown]
  - Psoriasis [Unknown]
  - Dyspnoea [Unknown]
  - Vomiting [Unknown]

NARRATIVE: CASE EVENT DATE: 2016
